FAERS Safety Report 7471129-9 (Version None)
Quarter: 2011Q2

REPORT INFORMATION
  Report Type: 
  Country: None (occurrence: None)
  Receive Date: 20110510
  Receipt Date: 20110504
  Transmission Date: 20111010
  Serious: Yes (Hospitalization)
  Sender: FDA-Public Use
  Company Number: US-B.I. PHARMACEUTICALS,INC./RIDGEFIELD-2011-BP-09049BP

PATIENT
  Sex: Male

DRUGS (13)
  1. PRILOSEC OTC [Concomitant]
     Indication: GASTROOESOPHAGEAL REFLUX DISEASE
  2. PRADAXA [Suspect]
     Indication: ATRIAL FIBRILLATION
     Dosage: 300 MG
  3. INDERAL [Concomitant]
     Indication: HYPERTENSION
     Dosage: 60 MG
  4. NORVASC [Concomitant]
     Indication: HYPERTENSION
     Dosage: 5 MG
  5. GLUCOSAMINE [Concomitant]
     Indication: ROUTINE HEALTH MAINTENANCE
  6. MELOXICAM [Concomitant]
     Indication: ARTHRALGIA
  7. INDERAL [Concomitant]
     Indication: TREMOR
  8. SYNTHROID (GENERIC) [Concomitant]
     Dosage: 150 MG
  9. LOSARTAN POT [Concomitant]
     Indication: HYPERTENSION
     Dosage: 100 MG
  10. ZOCOR [Concomitant]
     Indication: BLOOD CHOLESTEROL
     Dosage: 80 MG
  11. CENTRUM SILVER [Concomitant]
  12. PRADAXA [Suspect]
     Indication: ANTICOAGULANT THERAPY
  13. LOVAZA [Concomitant]

REACTIONS (1)
  - GASTROINTESTINAL DISORDER [None]
